FAERS Safety Report 25044145 (Version 1)
Quarter: 2025Q1

REPORT INFORMATION
  Report Type: Report from Study
  Country: CA (occurrence: CA)
  Receive Date: 20250306
  Receipt Date: 20250306
  Transmission Date: 20250409
  Serious: Yes (Other)
  Sender: TAKEDA
  Company Number: CA-TAKEDA-2025TUS020551

PATIENT
  Sex: Female

DRUGS (9)
  1. VEDOLIZUMAB [Suspect]
     Active Substance: VEDOLIZUMAB
     Indication: Colitis ulcerative
  2. FUROSEMIDE [Concomitant]
     Active Substance: FUROSEMIDE
  3. SPIRONOLACTONE [Concomitant]
     Active Substance: SPIRONOLACTONE
  4. PREGABALIN [Concomitant]
     Active Substance: PREGABALIN
  5. CELECOXIB [Concomitant]
     Active Substance: CELECOXIB
  6. FAMCICLOVIR [Concomitant]
     Active Substance: FAMCICLOVIR
  7. CALCIUM [Concomitant]
     Active Substance: CALCIUM
  8. VITAMIN D [Concomitant]
     Active Substance: VITAMIN D NOS
  9. VITAMIN B12 [Concomitant]
     Active Substance: CYANOCOBALAMIN

REACTIONS (5)
  - Angina pectoris [Unknown]
  - Coronary artery occlusion [Unknown]
  - Cardiac valve disease [Unknown]
  - Chest pain [Unknown]
  - Heart rate increased [Unknown]
